FAERS Safety Report 19934694 (Version 4)
Quarter: 2022Q1

REPORT INFORMATION
  Report Type: Spontaneous
  Country: US (occurrence: US)
  Receive Date: 20211008
  Receipt Date: 20220117
  Transmission Date: 20220423
  Serious: Yes (Other)
  Sender: FDA-Public Use
  Company Number: US-GSKCCFUS-CASE-01185461_AE-69398

PATIENT
  Sex: Male

DRUGS (1)
  1. NUCALA [Suspect]
     Active Substance: MEPOLIZUMAB
     Indication: Bronchitis
     Dosage: UNK
     Dates: start: 202110

REACTIONS (9)
  - Hallucination, visual [Unknown]
  - Urinary incontinence [Unknown]
  - Urinary tract infection [Unknown]
  - Nasal congestion [Unknown]
  - Nightmare [Unknown]
  - Wrong technique in device usage process [Unknown]
  - Accidental exposure to product [Unknown]
  - Incorrect dose administered [Unknown]
  - Therapeutic product effect incomplete [Unknown]
